FAERS Safety Report 10297579 (Version 3)
Quarter: 2014Q3

REPORT INFORMATION
  Report Type: Spontaneous
  Country: GB (occurrence: GB)
  Receive Date: 20140711
  Receipt Date: 20140918
  Transmission Date: 20150326
  Serious: Yes (Death, Hospitalization)
  Sender: FDA-Public Use
  Company Number: PHFR2014GB004831

PATIENT
  Sex: Female

DRUGS (6)
  1. CLOZARIL [Suspect]
     Active Substance: CLOZAPINE
     Indication: SCHIZOPHRENIA, PARANOID TYPE
     Dosage: 350 MG, DAILY (50MG MORNING AND 300MG NIGHT)
     Route: 048
     Dates: start: 2007
  2. CLOZARIL [Suspect]
     Active Substance: CLOZAPINE
     Indication: SCHIZOPHRENIA
     Dosage: UNK
     Route: 048
     Dates: start: 20050314
  3. HALOPERIDOL. [Concomitant]
     Active Substance: HALOPERIDOL
     Indication: AGGRESSION
     Dosage: 1 DF,(1MG OR 2 MG) PRN
  4. DEPIXOL [Concomitant]
     Active Substance: FLUPENTIXOL DECANOATE
     Dosage: 3 MG, PRN
     Route: 048
  5. DEPIXOL [Concomitant]
     Active Substance: FLUPENTIXOL DECANOATE
     Dosage: 3 MG, BID
     Route: 048
     Dates: start: 200808
  6. DEPIXOL [Concomitant]
     Active Substance: FLUPENTIXOL DECANOATE
     Dosage: 3 MG, DAILY
     Route: 048

REACTIONS (3)
  - Pneumonia [Fatal]
  - Chronic obstructive pulmonary disease [Unknown]
  - Loss of consciousness [Unknown]
